FAERS Safety Report 24390057 (Version 1)
Quarter: 2024Q4

REPORT INFORMATION
  Report Type: Spontaneous
  Country: US (occurrence: US)
  Receive Date: 20241003
  Receipt Date: 20241003
  Transmission Date: 20250114
  Serious: No
  Sender: ELI LILLY AND CO
  Company Number: US-ELI_LILLY_AND_COMPANY-US202409017446

PATIENT

DRUGS (1)
  1. KISUNLA [Suspect]
     Active Substance: DONANEMAB-AZBT
     Indication: Dementia
     Dosage: 700 MG, UNKNOWN
     Route: 042
     Dates: start: 20240926

REACTIONS (2)
  - Abdominal pain [Unknown]
  - Flushing [Unknown]

NARRATIVE: CASE EVENT DATE: 20240926
